FAERS Safety Report 23821535 (Version 1)
Quarter: 2024Q2

REPORT INFORMATION
  Report Type: Spontaneous
  Country: US (occurrence: US)
  Receive Date: 20240506
  Receipt Date: 20240506
  Transmission Date: 20240716
  Serious: Yes (Other)
  Sender: FDA-Public Use
  Company Number: US-INCYTE CORPORATION-2024IN004640

PATIENT

DRUGS (1)
  1. JAKAFI [Suspect]
     Active Substance: RUXOLITINIB
     Indication: Myeloproliferative neoplasm
     Dosage: 5 MG MORNING, 10 MG EVENING
     Route: 048
     Dates: start: 20240403

REACTIONS (8)
  - Loss of consciousness [Unknown]
  - Red blood cell count decreased [Unknown]
  - Nausea [Unknown]
  - Cystitis [Unknown]
  - Hypotension [Unknown]
  - Constipation [Unknown]
  - Decubitus ulcer [Unknown]
  - Off label use [Unknown]

NARRATIVE: CASE EVENT DATE: 20240403
